FAERS Safety Report 20112583 (Version 3)
Quarter: 2022Q1

REPORT INFORMATION
  Report Type: Report from Study
  Country: BR (occurrence: BR)
  Receive Date: 20211125
  Receipt Date: 20220111
  Transmission Date: 20220423
  Serious: Yes (Death, Hospitalization, Other)
  Sender: FDA-Public Use
  Company Number: BR-NOVARTISPH-NVSC2021BR268807

PATIENT
  Age: 71 Year
  Sex: Female
  Weight: 60 kg

DRUGS (20)
  1. ANASTROZOLE [Suspect]
     Active Substance: ANASTROZOLE
     Indication: Breast cancer
     Dosage: 1 MG, QD
     Route: 048
     Dates: start: 201710, end: 201902
  2. EVEROLIMUS [Suspect]
     Active Substance: EVEROLIMUS
     Indication: HER2 negative breast cancer
     Dosage: 5 MG, QD
     Route: 048
     Dates: start: 201902, end: 202001
  3. EVEROLIMUS [Suspect]
     Active Substance: EVEROLIMUS
     Indication: Breast cancer
  4. RIBOCICLIB [Suspect]
     Active Substance: RIBOCICLIB
     Indication: HER2 negative breast cancer
     Dosage: 3 DOSAGE FORM (200 MG), QD
     Route: 048
     Dates: start: 202001, end: 202001
  5. RIBOCICLIB [Suspect]
     Active Substance: RIBOCICLIB
     Indication: Breast cancer
     Dosage: 2 DOSAGE FORM (200 MG), QD
     Route: 048
     Dates: start: 202002, end: 202011
  6. RIBOCICLIB [Suspect]
     Active Substance: RIBOCICLIB
     Dosage: 1 DOSAGE FORM (200 MG), QD
     Route: 048
     Dates: start: 202011, end: 202101
  7. FULVESTRANT [Suspect]
     Active Substance: FULVESTRANT
     Indication: HER2 negative breast cancer
     Dosage: 500 MG,(EVERY 28 DAYS, THE INTERVAL BEING 14 DAYS BETWEEN CYCLE 1 AND CYCLE 2 AND CYCLE 3)
     Route: 030
     Dates: start: 202001, end: 202104
  8. FULVESTRANT [Suspect]
     Active Substance: FULVESTRANT
     Indication: Breast cancer
  9. ATENOLOL [Concomitant]
     Active Substance: ATENOLOL
     Indication: Hypertension
     Dosage: 10 MG, QD (ONE TABLET)
     Route: 048
     Dates: end: 202011
  10. ENALAPRIL [Concomitant]
     Active Substance: ENALAPRIL
     Indication: Hypertension
     Dosage: 10 MG, Q12H
     Route: 048
     Dates: end: 202011
  11. HYDROCHLOROTHIAZIDE [Concomitant]
     Active Substance: HYDROCHLOROTHIAZIDE
     Indication: Hypertension
     Dosage: 25 MG, QD (ONE TABLET)
     Route: 048
     Dates: end: 202107
  12. NPH INSULIN [Concomitant]
     Active Substance: INSULIN BEEF
     Indication: Diabetes mellitus
     Dosage: 40 IU, QD
     Route: 058
     Dates: end: 202107
  13. ATORVASTATIN [Concomitant]
     Active Substance: ATORVASTATIN
     Indication: Dyslipidaemia
     Dosage: 10 MG, QD (ONE TABLET)
     Route: 048
     Dates: end: 202107
  14. EMPAGLIFLOZIN [Concomitant]
     Active Substance: EMPAGLIFLOZIN
     Indication: Diabetes mellitus
     Dosage: 1 DOSAGE FORM, QD (ONE TABLET 25MG/5MG)
     Route: 048
     Dates: end: 202107
  15. CLONAZEPAM [Concomitant]
     Active Substance: CLONAZEPAM
     Indication: Depression
     Dosage: 2 MG, QD (ONE TABLET)
     Route: 048
     Dates: end: 202107
  16. DAFLON [Concomitant]
     Indication: Peripheral venous disease
     Dosage: 100 MG, QD (ONE TABLET)
     Route: 048
     Dates: end: 202011
  17. PREGABALIN [Concomitant]
     Active Substance: PREGABALIN
     Indication: Pain
     Dosage: 150 MG, QD (ONE TABLET)
     Route: 048
     Dates: end: 202107
  18. MORPHINE HYDROCHLORIDE [Concomitant]
     Active Substance: MORPHINE HYDROCHLORIDE
     Indication: Pain
     Dosage: 10 MG, Q8H (ONE TABLET)
     Route: 048
     Dates: start: 202003, end: 202107
  19. TRAZODONE HYDROCHLORIDE [Concomitant]
     Active Substance: TRAZODONE HYDROCHLORIDE
     Indication: Depression
     Dosage: 50 MG, QD (ONE TABLET)
     Route: 048
     Dates: start: 202011, end: 202107
  20. CLONIDINE [Concomitant]
     Active Substance: CLONIDINE
     Indication: Hypertension
     Dosage: 0.01 MG, Q8H (ONE TABLET)
     Route: 048
     Dates: start: 202011, end: 202107

REACTIONS (20)
  - Metastases to liver [Fatal]
  - Anaemia [Fatal]
  - Thrombocytopenia [Fatal]
  - Metastases to bone [Fatal]
  - Metastases to spinal cord [Fatal]
  - Pathological fracture [Recovered/Resolved with Sequelae]
  - Carcinoembryonic antigen increased [Not Recovered/Not Resolved]
  - Diarrhoea [Recovered/Resolved]
  - Nausea [Recovered/Resolved]
  - Fatigue [Recovered/Resolved]
  - Vomiting [Recovered/Resolved]
  - Osteolysis [Unknown]
  - Peripheral nerve lesion [Recovered/Resolved]
  - Bone erosion [Recovered/Resolved]
  - Bone pain [Not Recovered/Not Resolved]
  - Bone lesion [Recovered/Resolved with Sequelae]
  - Bone lesion [Recovering/Resolving]
  - Arthralgia [Not Recovered/Not Resolved]
  - Hypermetabolism [Unknown]
  - Fatigue [Not Recovered/Not Resolved]

NARRATIVE: CASE EVENT DATE: 20190101
